FAERS Safety Report 17901665 (Version 3)
Quarter: 2020Q3

REPORT INFORMATION
  Report Type: Spontaneous
  Country: FR (occurrence: FR)
  Receive Date: 20200616
  Receipt Date: 20200911
  Transmission Date: 20201103
  Serious: Yes (Life-Threatening, Hospitalization, Other)
  Sender: FDA-Public Use
  Company Number: FR-PFIZER INC-2020230107

PATIENT
  Sex: Female
  Weight: 54 kg

DRUGS (10)
  1. MIANSERIN HYDROCHLORIDE [Suspect]
     Active Substance: MIANSERIN HYDROCHLORIDE
     Dosage: UNK
     Dates: start: 20070101
  2. EFFEXOR LP [Suspect]
     Active Substance: VENLAFAXINE HYDROCHLORIDE
     Indication: MIGRAINE
  3. ZOLMITRIPTAN. [Suspect]
     Active Substance: ZOLMITRIPTAN
     Dosage: UNK
     Dates: start: 20080101
  4. DABRAFENIB [Concomitant]
     Active Substance: DABRAFENIB
     Indication: MALIGNANT MELANOMA
     Dosage: 150 MG, 2X/DAY
     Route: 048
     Dates: start: 20181207, end: 20191022
  5. EFFEXOR LP [Suspect]
     Active Substance: VENLAFAXINE HYDROCHLORIDE
     Indication: DEPRESSION
     Dosage: 75 MG, 1X/DAY
     Route: 048
     Dates: start: 19980101
  6. TRAMETINIB [Concomitant]
     Active Substance: TRAMETINIB
     Indication: MALIGNANT MELANOMA
     Dosage: 1 MG, 1X/DAY
     Route: 048
     Dates: start: 20181207, end: 20191022
  7. STILNOX [Suspect]
     Active Substance: ZOLPIDEM TARTRATE
     Indication: MIGRAINE
     Dosage: UNK
     Route: 065
     Dates: start: 20150101
  8. DESLORATADINE. [Suspect]
     Active Substance: DESLORATADINE
     Dosage: UNK
     Dates: start: 20190618
  9. DOLIPRANE [Suspect]
     Active Substance: ACETAMINOPHEN
     Dosage: UNK
     Dates: start: 20190328
  10. SALBUTAMOL SULFATE [Suspect]
     Active Substance: ALBUTEROL SULFATE
     Dosage: UNK
     Dates: start: 20190618

REACTIONS (6)
  - Depression [Unknown]
  - Toxicity to various agents [Unknown]
  - Toxicity to various agents [Recovered/Resolved]
  - Drug abuse [Unknown]
  - Major depression [Recovered/Resolved]
  - Overdose [Unknown]

NARRATIVE: CASE EVENT DATE: 20191021
